FAERS Safety Report 9577117 (Version 1)
Quarter: 2013Q4

REPORT INFORMATION
  Report Type: Spontaneous
  Country: US (occurrence: US)
  Receive Date: 20131001
  Receipt Date: 20131001
  Transmission Date: 20140711
  Serious: No
  Sender: FDA-Public Use
  Company Number: US-AMGEN-USASP2013006430

PATIENT
  Age: 16 Year
  Sex: Female
  Weight: 90.7 kg

DRUGS (3)
  1. ENBREL [Suspect]
     Indication: JUVENILE IDIOPATHIC ARTHRITIS
     Dosage: 25 MG, 2 TIMES/WK EVERY MONDAY AND THURSDAY
     Route: 058
  2. NAPROXEN [Concomitant]
     Dosage: 500 MG, UNK
  3. ALLEGRA [Concomitant]
     Dosage: 180 MG, UNK

REACTIONS (2)
  - Arthritis [Unknown]
  - Pain [Unknown]
